FAERS Safety Report 7749692-X (Version None)
Quarter: 2011Q3

REPORT INFORMATION
  Report Type: 
  Country: None (occurrence: None)
  Receive Date: 20110914
  Receipt Date: 20110907
  Transmission Date: 20111222
  Serious: Yes (Hospitalization)
  Sender: FDA-Public Use
  Company Number: US-VIROPHARMA INCORPORATED-20110907CINRY2269

PATIENT
  Sex: Female

DRUGS (2)
  1. BENADRYL [Concomitant]
     Indication: PRODUCT USED FOR UNKNOWN INDICATION
     Dosage: UNKNOWN
     Route: 065
  2. CINRYZE [Suspect]
     Indication: HEREDITARY ANGIOEDEMA

REACTIONS (6)
  - DRUG DOSE OMISSION [None]
  - JOINT INJURY [None]
  - ANGIOEDEMA [None]
  - FALL [None]
  - HEREDITARY ANGIOEDEMA [None]
  - STRESS [None]
